FAERS Safety Report 16596854 (Version 1)
Quarter: 2019Q3

REPORT INFORMATION
  Report Type: Spontaneous
  Country: US (occurrence: US)
  Receive Date: 20190718
  Receipt Date: 20190718
  Transmission Date: 20191004
  Serious: No
  Sender: FDA-Public Use
  Company Number: None

PATIENT
  Sex: Male

DRUGS (9)
  1. CABOMETYX [Suspect]
     Active Substance: CABOZANTINIB S-MALATE
     Indication: RENAL CANCER
     Route: 048
  2. LIDO.PRILOCN CRE [Concomitant]
  3. TUMS EX [Concomitant]
     Active Substance: CALCIUM CARBONATE
  4. LOPERAMIDE [Concomitant]
     Active Substance: LOPERAMIDE
  5. TAMSULOSIN [Concomitant]
     Active Substance: TAMSULOSIN
  6. FINASTERIDE. [Concomitant]
     Active Substance: FINASTERIDE
  7. ONDANSETRON [Concomitant]
     Active Substance: ONDANSETRON
  8. CLOBETASOL [Concomitant]
     Active Substance: CLOBETASOL
  9. MULTI-VITAMIN [Concomitant]
     Active Substance: .ALPHA.-TOCOPHEROL ACETATE, DL-\ASCORBIC ACID\CYANOCOBALAMIN\FLUORIDE ION\FOLIC ACID\NIACIN\PYRIDOXINE\RIBOFLAVIN\THIAMINE\VITAMIN A\VITAMIN D

REACTIONS (3)
  - Stomatitis [None]
  - Therapy cessation [None]
  - Skin lesion [None]
